FAERS Safety Report 7386025-5 (Version None)
Quarter: 2011Q1

REPORT INFORMATION
  Report Type: 
  Country: None (occurrence: None)
  Receive Date: 20110331
  Receipt Date: 20110322
  Transmission Date: 20110831
  Serious: Yes (Death, Other)
  Sender: FDA-Public Use
  Company Number: US-SANOFI-AVENTIS-2010SA050185

PATIENT
  Age: 76 Year
  Sex: Male
  Weight: 88.64 kg

DRUGS (16)
  1. SYNTHROID [Concomitant]
     Dates: end: 20100812
  2. MULTAQ [Suspect]
     Route: 048
     Dates: start: 20090825, end: 20100708
  3. TAMSULOSIN HYDROCHLORIDE [Concomitant]
     Indication: PROSTATIC DISORDER
     Dates: end: 20100812
  4. COLCHICINE [Concomitant]
     Indication: GOUT
     Route: 048
     Dates: end: 20100812
  5. FLUTICASONE PROPIONATE [Concomitant]
     Dosage: DOSE:4 UNIT(S)
     Dates: end: 20100812
  6. ASPIRIN [Concomitant]
     Indication: CORONARY ARTERY DISEASE
     Dates: end: 20100812
  7. ACCUPRIL [Concomitant]
     Indication: HYPERTENSION
     Dates: end: 20100812
  8. ALBUTEROL [Suspect]
     Indication: CHRONIC OBSTRUCTIVE PULMONARY DISEASE
     Dosage: DOSE:2 PUFF(S)
     Route: 048
     Dates: end: 20100812
  9. VITAMIN D [Concomitant]
     Dosage: DOSE:1000 UNIT(S)
     Dates: end: 20100812
  10. ADVAIR DISKUS 100/50 [Concomitant]
     Indication: CHRONIC OBSTRUCTIVE PULMONARY DISEASE
     Dates: end: 20100812
  11. THEOPHYLLINE [Suspect]
     Route: 065
     Dates: end: 20100101
  12. SINGULAIR [Concomitant]
     Indication: CHRONIC OBSTRUCTIVE PULMONARY DISEASE
     Dates: end: 20100812
  13. SIMVASTATIN [Concomitant]
     Dates: end: 20100812
  14. MULTAQ [Suspect]
     Route: 048
     Dates: start: 20100809, end: 20100812
  15. CALCIUM CITRATE [Concomitant]
     Dates: end: 20100812
  16. PREDNISONE [Concomitant]
     Indication: CHRONIC OBSTRUCTIVE PULMONARY DISEASE
     Dates: end: 20100812

REACTIONS (5)
  - PHOTOSENSITIVITY REACTION [None]
  - CARDIAC FAILURE CONGESTIVE [None]
  - SUDDEN DEATH [None]
  - ATRIAL FLUTTER [None]
  - UNDERDOSE [None]
